FAERS Safety Report 10169725 (Version 1)
Quarter: 2014Q2

REPORT INFORMATION
  Report Type: Spontaneous
  Country: US (occurrence: US)
  Receive Date: 20140513
  Receipt Date: 20140513
  Transmission Date: 20141212
  Serious: Yes (Hospitalization)
  Sender: FDA-Public Use
  Company Number: US-UCBSA-120479

PATIENT
  Sex: Female
  Weight: 92.07 kg

DRUGS (10)
  1. CIMZIA [Suspect]
     Indication: CROHN^S DISEASE
     Dates: start: 20110605
  2. METHOTREXATE [Concomitant]
     Indication: SYSTEMIC LUPUS ERYTHEMATOSUS
     Dosage: APPROXIMATELY 5 YEARS
  3. METHOTREXATE [Concomitant]
     Indication: CROHN^S DISEASE
     Dosage: APPROXIMATELY 5 YEARS
  4. PLAQUENIL [Concomitant]
     Indication: SYSTEMIC LUPUS ERYTHEMATOSUS
     Dosage: APPROXIMATELY 5 YEARS
  5. SULFASMIDE [Concomitant]
     Indication: CROHN^S DISEASE
     Dosage: DAILY
     Dates: start: 2014
  6. SULFASMIDE [Concomitant]
     Indication: SYSTEMIC LUPUS ERYTHEMATOSUS
     Dosage: DAILY
     Dates: start: 2014
  7. SYNTHROID [Concomitant]
  8. HYDROCHLOROTHIAZIDE [Concomitant]
  9. ZOFRAN [Concomitant]
  10. ZOLOFT [Concomitant]

REACTIONS (2)
  - Arthritis [Unknown]
  - Osteoarthritis [Unknown]
